FAERS Safety Report 20921940 (Version 3)
Quarter: 2022Q3

REPORT INFORMATION
  Report Type: Other
  Country: NL (occurrence: None)
  Receive Date: 20220607
  Receipt Date: 20220707
  Transmission Date: 20221027
  Serious: No
  Sender: FDA-Public Use
  Company Number: NL-ROCHE-2434905

PATIENT
  Age: 41 Year
  Sex: Female
  Weight: 68 kg

DRUGS (14)
  1. OCRELIZUMAB [Suspect]
     Active Substance: OCRELIZUMAB
     Indication: Primary progressive multiple sclerosis
     Dosage: 300 MG/250 ML?VISIT 2
     Route: 042
     Dates: start: 20190327, end: 20190327
  2. OCRELIZUMAB [Suspect]
     Active Substance: OCRELIZUMAB
     Indication: Progressive relapsing multiple sclerosis
     Dosage: 300 MG/250 ML?VISIT 3
     Route: 042
     Dates: start: 20190410, end: 20190410
  3. OCRELIZUMAB [Suspect]
     Active Substance: OCRELIZUMAB
     Dosage: 600 MG/ 500 ML?VISIT 4
     Route: 042
     Dates: start: 20190925, end: 20190925
  4. OCRELIZUMAB [Suspect]
     Active Substance: OCRELIZUMAB
     Dosage: 600 MG/ 500 ML?VISIT 5
     Route: 042
     Dates: start: 20200515, end: 20200515
  5. OCRELIZUMAB [Suspect]
     Active Substance: OCRELIZUMAB
     Dosage: 600 MG/500 ML
     Route: 042
     Dates: start: 20201113, end: 20201113
  6. CITALOPRAM [Concomitant]
     Active Substance: CITALOPRAM HYDROBROMIDE
     Indication: Anxiety disorder
     Dosage: NEXT DOSE WAS ADMINISTERED ON 06/JUN/2016
     Route: 048
     Dates: start: 20160331
  7. CITALOPRAM [Concomitant]
     Active Substance: CITALOPRAM HYDROBROMIDE
     Route: 048
     Dates: start: 20190212
  8. QUETIAPINE [Concomitant]
     Active Substance: QUETIAPINE
     Indication: Anxiety disorder
     Route: 048
     Dates: start: 20160331
  9. MICONAZOLE [Concomitant]
     Active Substance: MICONAZOLE
     Indication: Candida infection
     Route: 061
     Dates: start: 20190829, end: 20200323
  10. TRIAMCINOLONE ACETONIDE [Concomitant]
     Active Substance: TRIAMCINOLONE ACETONIDE
     Indication: Candida infection
     Route: 061
     Dates: start: 20190829, end: 20200323
  11. PREDNISOLONE [Concomitant]
     Active Substance: PREDNISOLONE
     Indication: Premedication
     Dosage: SUBSEQUENT DOSES ON 10/APR/2019, 25/SEP/2019, 15/MAY/2020 AND 13/NOV/2020
     Route: 042
     Dates: start: 20190327, end: 20190327
  12. CLEMASTINE FUMARATE [Concomitant]
     Active Substance: CLEMASTINE FUMARATE
     Indication: Premedication
     Dosage: SUBSEQUENT DOSES ON 10/APR/2019 AND 25/SEP/2019, 15/MAY/2020 AND 13/NOV/2020
     Route: 042
     Dates: start: 20190327, end: 20190327
  13. ZANTAC [Concomitant]
     Active Substance: RANITIDINE HYDROCHLORIDE
     Indication: Premedication
     Dosage: SUBSEQUENT DOSES ON 10/APR/2019 AND 25/SEP/2019
     Route: 048
     Dates: start: 20190327, end: 20190327
  14. ACETAMINOPHEN [Concomitant]
     Active Substance: ACETAMINOPHEN
     Indication: Premedication
     Dosage: SUBSEQUENT DOSES ON 10/APR/2019, 25/SEP/2019, 15/MAY/2020 AND 13/NOV/2020
     Route: 048
     Dates: start: 20190327, end: 20190327

REACTIONS (3)
  - Nasopharyngitis [Recovered/Resolved]
  - Nasopharyngitis [Recovered/Resolved]
  - COVID-19 [Recovered/Resolved]

NARRATIVE: CASE EVENT DATE: 20190922
